FAERS Safety Report 17296837 (Version 1)
Quarter: 2020Q1

REPORT INFORMATION
  Report Type: Other
  Country: DE (occurrence: DE)
  Receive Date: 20200122
  Receipt Date: 20200122
  Transmission Date: 20200409
  Serious: Yes (Hospitalization)
  Sender: FDA-Public Use
  Company Number: DE-MACLEODS PHARMACEUTICALS US LTD-MAC2020024825

PATIENT

DRUGS (2)
  1. VALSARTAN. [Suspect]
     Active Substance: VALSARTAN
     Indication: CARDIAC FAILURE
     Dosage: TABLET
     Route: 048
     Dates: start: 20180220
  2. PHENPROCOUMON [Suspect]
     Active Substance: PHENPROCOUMON
     Indication: ATRIAL FIBRILLATION
     Dosage: 3 MILLIGRAM, QD
     Route: 048
     Dates: start: 20040322, end: 20180404

REACTIONS (1)
  - Haematoma [Recovered/Resolved]

NARRATIVE: CASE EVENT DATE: 20180405
